FAERS Safety Report 18623772 (Version 1)
Quarter: 2020Q4

REPORT INFORMATION
  Report Type: Spontaneous
  Country: US (occurrence: US)
  Receive Date: 20201216
  Receipt Date: 20201216
  Transmission Date: 20210114
  Serious: No
  Sender: FDA-Public Use
  Company Number: US-SA-2020SA358883

PATIENT

DRUGS (1)
  1. DUPIXENT [Suspect]
     Active Substance: DUPILUMAB
     Indication: PRODUCT USED FOR UNKNOWN INDICATION
     Dosage: 300 MG
     Route: 058

REACTIONS (5)
  - Abdominal discomfort [Unknown]
  - Cough [Unknown]
  - Unevaluable event [Unknown]
  - Musculoskeletal discomfort [Unknown]
  - Eosinophil count increased [Unknown]
